FAERS Safety Report 7203224-3 (Version None)
Quarter: 2010Q4

REPORT INFORMATION
  Report Type: 
  Country: None (occurrence: None)
  Receive Date: 20101230
  Receipt Date: 20101222
  Transmission Date: 20110411
  Serious: Yes (Hospitalization)
  Sender: FDA-Public Use
  Company Number: DE-BIOGENIDEC-2010BI044605

PATIENT
  Age: 42 Year
  Sex: Female
  Weight: 44 kg

DRUGS (4)
  1. AVONEX [Suspect]
     Indication: RELAPSING-REMITTING MULTIPLE SCLEROSIS
     Route: 030
     Dates: start: 20091201, end: 20100201
  2. FENTANYL-100 [Concomitant]
     Indication: OSTEOPOROSIS
     Route: 062
     Dates: start: 20090101
  3. STANGYL [Concomitant]
     Indication: OSTEOPOROSIS
     Dates: start: 19980101
  4. BACLOFEN [Concomitant]
     Indication: MUSCLE SPASTICITY
     Dates: start: 20080801

REACTIONS (1)
  - ANAPHYLACTIC SHOCK [None]
